FAERS Safety Report 8651624 (Version 3)
Quarter: 2013Q2

REPORT INFORMATION
  Report Type: Spontaneous
  Country: US (occurrence: US)
  Receive Date: 20120706
  Receipt Date: 20130409
  Transmission Date: 20140414
  Serious: Yes (Other)
  Sender: FDA-Public Use
  Company Number: US-BAYER-2012-066223

PATIENT
  Age: 23 Year
  Sex: Female
  Weight: 106 kg

DRUGS (12)
  1. YAZ [Suspect]
     Indication: PREMENSTRUAL DYSPHORIC DISORDER
     Dosage: UNK
     Dates: start: 201008, end: 201106
  2. GIANVI [Suspect]
     Indication: PREMENSTRUAL DYSPHORIC DISORDER
     Dosage: UNK
     Dates: start: 201008, end: 201106
  3. YASMIN [Suspect]
  4. ZYRTEC [Concomitant]
     Dosage: EVERY DAY
     Route: 048
  5. MULTIVITAMINS [Concomitant]
     Dosage: EVERY DAY
     Route: 048
  6. VERAMYST [Concomitant]
     Dosage: 27.5 ?G, UNK
     Route: 045
     Dates: start: 20110311
  7. CLARITHROMYCIN [Concomitant]
     Dosage: 500 MG, UNK
     Dates: start: 20110321
  8. AMOXICILLIN [Concomitant]
     Dosage: 500 MG, UNK
     Dates: start: 20110408
  9. DOXYCYCLINE [Concomitant]
     Dosage: 100 MG, UNK
     Dates: start: 20110424
  10. TRAMADOL [Concomitant]
     Dosage: 50 MG, UNK
     Dates: start: 20110425
  11. DICLOFENAC [Concomitant]
  12. ALEVE [Concomitant]

REACTIONS (2)
  - Deep vein thrombosis [None]
  - Post thrombotic syndrome [None]
